FAERS Safety Report 14584571 (Version 1)
Quarter: 2018Q1

REPORT INFORMATION
  Report Type: Spontaneous
  Country: US (occurrence: US)
  Receive Date: 20180301
  Receipt Date: 20180301
  Transmission Date: 20180509
  Serious: Yes (Life-Threatening, Hospitalization, Other)
  Sender: FDA-Public Use
  Company Number: US-CONCORDIA PHARMACEUTICALS INC.-E2B_00010293

PATIENT
  Sex: Female

DRUGS (3)
  1. DILTIAZEM ER [Suspect]
     Active Substance: DILTIAZEM
     Route: 048
  2. DIGOXIN. [Suspect]
     Active Substance: DIGOXIN
     Route: 048
  3. ALPRAZOLAM. [Suspect]
     Active Substance: ALPRAZOLAM
     Route: 048

REACTIONS (7)
  - Toxicity to various agents [Unknown]
  - Metabolic acidosis [Unknown]
  - Pulseless electrical activity [Unknown]
  - Cardiogenic shock [Unknown]
  - Renal failure [Unknown]
  - Multiple organ dysfunction syndrome [Unknown]
  - Overdose [Unknown]
